FAERS Safety Report 7791538-8 (Version None)
Quarter: 2011Q3

REPORT INFORMATION
  Report Type: 
  Country: None (occurrence: None)
  Receive Date: 20110930
  Receipt Date: 20110930
  Transmission Date: 20111222
  Serious: Yes (Hospitalization, Other)
  Sender: FDA-Public Use
  Company Number: None

PATIENT
  Age: 70 Year
  Sex: Male
  Weight: 100.2449 kg

DRUGS (1)
  1. ACTOS [Suspect]
     Indication: BLOOD GLUCOSE INCREASED
     Dosage: 30 MG TAB 1X DAY ACTOS 30MG TAB
     Dates: start: 20040427, end: 20071210

REACTIONS (1)
  - BLADDER CANCER [None]
